FAERS Safety Report 25607313 (Version 1)
Quarter: 2025Q3

REPORT INFORMATION
  Report Type: Spontaneous
  Country: US (occurrence: US)
  Receive Date: 20250725
  Receipt Date: 20250725
  Transmission Date: 20251021
  Serious: No
  Sender: INSUD PHARMA
  Company Number: US-INSUD PHARMA-2507US05801

PATIENT

DRUGS (1)
  1. SLYND [Suspect]
     Active Substance: DROSPIRENONE
     Indication: Product used for unknown indication
     Route: 048
     Dates: start: 202501

REACTIONS (2)
  - Vaginal haemorrhage [Not Recovered/Not Resolved]
  - Intermenstrual bleeding [Not Recovered/Not Resolved]

NARRATIVE: CASE EVENT DATE: 20250101
